FAERS Safety Report 23224246 (Version 1)
Quarter: 2023Q4

REPORT INFORMATION
  Report Type: Report from Study
  Country: US (occurrence: US)
  Receive Date: 20231124
  Receipt Date: 20231124
  Transmission Date: 20240109
  Serious: Yes (Other)
  Sender: FDA-Public Use
  Company Number: US-ABBVIE-4771161

PATIENT
  Age: 68 Year
  Sex: Male

DRUGS (1)
  1. SKYRIZI [Suspect]
     Active Substance: RISANKIZUMAB-RZAA
     Indication: Psoriasis
     Route: 058
     Dates: start: 20210701

REACTIONS (5)
  - Retinal detachment [Recovering/Resolving]
  - Skin disorder [Not Recovered/Not Resolved]
  - Rheumatoid arthritis [Unknown]
  - Vitiligo [Not Recovered/Not Resolved]
  - Ocular discomfort [Unknown]

NARRATIVE: CASE EVENT DATE: 20230501
